FAERS Safety Report 21323127 (Version 1)
Quarter: 2022Q3

REPORT INFORMATION
  Report Type: Spontaneous
  Country: US (occurrence: None)
  Receive Date: 20220909
  Receipt Date: 20220909
  Transmission Date: 20221027
  Serious: Yes (Hospitalization)
  Sender: FDA-Public Use
  Company Number: None

PATIENT
  Age: 61 Year
  Sex: Female
  Weight: 83.6 kg

DRUGS (9)
  1. BRAFTOVI [Suspect]
     Active Substance: ENCORAFENIB
     Indication: Colon cancer
     Dosage: FREQUENCY : DAILY;?
     Route: 048
     Dates: start: 20220902, end: 20220905
  2. PANTOPRAZOLE [Concomitant]
     Active Substance: PANTOPRAZOLE
  3. CHOLECALCIFEROL [Concomitant]
  4. APIXABAN [Concomitant]
     Active Substance: APIXABAN
  5. LEVOTHYROXINE [Concomitant]
  6. halobetasol propionate topical [Concomitant]
  7. ACETAMINOPHEN [Concomitant]
  8. CITALOPRAM [Concomitant]
  9. POLYETHYLENE GLYCOL 3350 [Concomitant]
     Active Substance: POLYETHYLENE GLYCOL 3350

REACTIONS (8)
  - Pancreatitis [None]
  - Headache [None]
  - White blood cell count decreased [None]
  - Platelet count decreased [None]
  - Muscle spasms [None]
  - Condition aggravated [None]
  - Nausea [None]
  - Vomiting [None]

NARRATIVE: CASE EVENT DATE: 20220905
